FAERS Safety Report 9106559 (Version 6)
Quarter: 2013Q2

REPORT INFORMATION
  Report Type: Report from Study
  Country: CA (occurrence: CA)
  Receive Date: 20130221
  Receipt Date: 20130607
  Transmission Date: 20140414
  Serious: Yes (Death, Other)
  Sender: FDA-Public Use
  Company Number: CA-ROCHE-1185996

PATIENT
  Age: 47 Year
  Sex: Male
  Weight: 67 kg

DRUGS (8)
  1. AVASTIN [Suspect]
     Indication: GLIOBLASTOMA
     Dosage: THERAPY START DATE: 17/JAN/2013
     Route: 042
     Dates: start: 20130117, end: 20130306
  2. KEPPRA [Concomitant]
     Indication: EPILEPSY
  3. DECADRON [Concomitant]
  4. PANTOPRAZOLE [Concomitant]
  5. DOCUSATE [Concomitant]
  6. SENOKOT [Concomitant]
  7. LUMIGAN [Concomitant]
  8. ONDANSETRON [Concomitant]

REACTIONS (4)
  - Disease progression [Fatal]
  - Confusional state [Not Recovered/Not Resolved]
  - Rash erythematous [Recovered/Resolved]
  - Erythema [Recovered/Resolved]
